FAERS Safety Report 5609017-2 (Version None)
Quarter: 2008Q1

REPORT INFORMATION
  Report Type: 
  Country: None (occurrence: None)
  Receive Date: 20080131
  Receipt Date: 20080123
  Transmission Date: 20080703
  Serious: Yes (Other)
  Sender: FDA-Public Use
  Company Number: PHBS2008IT01452

PATIENT
  Weight: 2.4 kg

DRUGS (4)
  1. FOLIC ACID [Concomitant]
     Route: 064
  2. BETA BLOCKING AGENTS [Concomitant]
     Route: 064
  3. DEFEROXAMINE MESYLATE [Suspect]
     Route: 064
  4. INSULIN [Concomitant]
     Indication: GESTATIONAL DIABETES
     Route: 064

REACTIONS (3)
  - DRUG EXPOSURE DURING PREGNANCY [None]
  - FOETAL DISTRESS SYNDROME [None]
  - PREMATURE BABY [None]
